FAERS Safety Report 6931130-8 (Version None)
Quarter: 2010Q3

REPORT INFORMATION
  Report Type: 
  Country: None (occurrence: None)
  Receive Date: 20100817
  Receipt Date: 20100817
  Transmission Date: 20110219
  Serious: Yes (Life-Threatening, Hospitalization)
  Sender: FDA-Public Use
  Company Number: None

PATIENT
  Age: 54 Year
  Sex: Female

DRUGS (1)
  1. SAPHRIS [Suspect]

REACTIONS (5)
  - ACID BASE BALANCE ABNORMAL [None]
  - BRADYCARDIA [None]
  - CARDIAC ARREST [None]
  - HYPONATRAEMIA [None]
  - RENAL FAILURE ACUTE [None]
